FAERS Safety Report 9383792 (Version 1)
Quarter: 2013Q3

REPORT INFORMATION
  Report Type: Spontaneous
  Country: IE (occurrence: IE)
  Receive Date: 20130704
  Receipt Date: 20130704
  Transmission Date: 20140515
  Serious: Yes (Hospitalization)
  Sender: FDA-Public Use
  Company Number: IE-AMGEN-IRLSP2013046526

PATIENT
  Age: 49 Year
  Sex: Male

DRUGS (6)
  1. NEULASTA [Suspect]
     Indication: HEAD AND NECK CANCER
     Dosage: 6 MG/0.6 ML, POST CHEMOTHERAPY
     Route: 058
     Dates: start: 20130611
  2. EMEND                              /01627301/ [Concomitant]
     Dosage: UNK
  3. ETOPOSIDE [Concomitant]
     Dosage: UNK
  4. CISPLATIN [Concomitant]
     Dosage: UNK
  5. DEXAMETHASONE [Concomitant]
     Dosage: UNK
  6. MOTILIUM                           /00498201/ [Concomitant]
     Dosage: UNK

REACTIONS (1)
  - Neutropenia [Unknown]
